FAERS Safety Report 9765124 (Version 1)
Quarter: 2013Q4

REPORT INFORMATION
  Report Type: Spontaneous
  Country: US (occurrence: None)
  Receive Date: 20131216
  Receipt Date: 20131216
  Transmission Date: 20140711
  Serious: Yes (Life-Threatening, Disabling)
  Sender: FDA-Public Use
  Company Number: None

PATIENT
  Age: 19 Year
  Sex: Female
  Weight: 52.16 kg

DRUGS (1)
  1. MINOCYCLINE [Suspect]
     Indication: ACNE
     Dosage: 1 PILL, ONCE DAILY, TAKEN BY MOUTH
     Route: 048

REACTIONS (6)
  - Neuropathy peripheral [None]
  - Abasia [None]
  - Lupus-like syndrome [None]
  - Hypoaesthesia [None]
  - Arthralgia [None]
  - Arthritis [None]
